FAERS Safety Report 5212876-9 (Version None)
Quarter: 2007Q1

REPORT INFORMATION
  Report Type: 
  Country: None (occurrence: None)
  Receive Date: 20070119
  Receipt Date: 20070109
  Transmission Date: 20070707
  Serious: Yes (Other)
  Sender: FDA-Public Use
  Company Number: PHBS2006JP19881

PATIENT
  Age: 67 Year
  Sex: Female

DRUGS (5)
  1. SANDIMMUNE [Suspect]
     Indication: COLITIS ULCERATIVE
     Dosage: 2 MG/KG/DAY
     Route: 041
  2. IMURAN [Suspect]
     Indication: COLITIS ULCERATIVE
     Dosage: 50 MG/DAY
  3. PENTASA [Concomitant]
     Indication: COLITIS ULCERATIVE
     Dosage: 2250 MG/DAY
     Route: 048
  4. PENTASA [Concomitant]
     Dosage: 100 ML/DAY
     Route: 054
  5. STERONEMA [Concomitant]
     Indication: COLITIS ULCERATIVE
     Dosage: 100 ML/DAY
     Route: 054

REACTIONS (4)
  - INFLAMMATION [None]
  - PANCYTOPENIA [None]
  - PYREXIA [None]
  - WHITE BLOOD CELL COUNT DECREASED [None]
